FAERS Safety Report 9215376 (Version 4)
Quarter: 2014Q1

REPORT INFORMATION
  Report Type: Spontaneous
  Country: US (occurrence: US)
  Receive Date: 20130405
  Receipt Date: 20140124
  Transmission Date: 20141002
  Serious: Yes (Death, Hospitalization)
  Sender: FDA-Public Use
  Company Number: US-B.I. PHARMACEUTICALS,INC./RIDGEFIELD-2010-BP-15393BP

PATIENT
  Age: 83 Year
  Sex: Male
  Weight: 86.18 kg

DRUGS (10)
  1. PRADAXA [Suspect]
     Indication: ATRIAL FIBRILLATION
     Dosage: 300 MG
     Route: 048
     Dates: start: 20101123, end: 20111128
  2. BABY ASA [Concomitant]
     Indication: CARDIAC DISORDER
     Dosage: 81 MG
  3. ZOCOR [Concomitant]
     Indication: BLOOD CHOLESTEROL INCREASED
  4. METOPROLOL [Concomitant]
     Indication: HYPERTENSION
  5. DIOVAN [Concomitant]
     Indication: HYPERTENSION
  6. NORVASC [Concomitant]
     Indication: HYPERTENSION
  7. TORMISIDE [Concomitant]
     Indication: HYPERTENSION
  8. FORADIL [Concomitant]
     Indication: EMPHYSEMA
  9. SPIRIVA [Concomitant]
     Indication: EMPHYSEMA
  10. ASMAX [Concomitant]
     Indication: EMPHYSEMA

REACTIONS (6)
  - Haemorrhage [Fatal]
  - Haemoptysis [Fatal]
  - Respiratory failure [Fatal]
  - Renal failure acute [Fatal]
  - Coagulopathy [Unknown]
  - Contusion [Not Recovered/Not Resolved]
